FAERS Safety Report 7525180-0 (Version None)
Quarter: 2011Q2

REPORT INFORMATION
  Report Type: 
  Country: None (occurrence: None)
  Receive Date: 20110526
  Receipt Date: 20110511
  Transmission Date: 20111010
  Serious: Yes (Hospitalization)
  Sender: FDA-Public Use
  Company Number: CIP11000565

PATIENT
  Age: 63 Year
  Sex: Female
  Weight: 90 kg

DRUGS (21)
  1. FOSAMAX PLUS D [Suspect]
     Indication: OSTEOPENIA
     Dates: start: 20080207, end: 20081001
  2. BEXTRA /01401501/ (VALDECOXIB) [Concomitant]
  3. MOBIC [Concomitant]
  4. VERAPAMIL [Concomitant]
  5. LIVOSTIN /01196302/ (LEVOCABASTINE HYDROCHLORIDE) [Concomitant]
  6. SINGULAIR /01362301/ (MONTELUKAST) [Concomitant]
  7. VITAMIN D /00318501/ (COLECALCIFEROL) [Concomitant]
  8. FOSAMAX [Suspect]
     Indication: OSTEOPENIA
     Dosage: 70 MG, 1/WEEK, ORAL
     Route: 048
     Dates: start: 20030101, end: 20040101
  9. FLOVENT [Concomitant]
  10. LEXAPRO [Concomitant]
  11. VICODIN [Concomitant]
  12. ALENDRONATE SODIUM [Suspect]
     Indication: OSTEOPENIA
     Dosage: 70 MG, 1/WEEK, ORAL
     Route: 048
     Dates: start: 20081001, end: 20100101
  13. IMITREX /01044801/ (SUMATRIPAN) [Concomitant]
  14. DETROL LA [Concomitant]
  15. ALBUTEROL [Concomitant]
  16. ALPRAZOLAM [Concomitant]
  17. CALCIUM (CALCIUM) [Concomitant]
  18. ACTONEL [Suspect]
     Indication: OSTEOPENIA
     Dosage: 35 MG, 1/WEEK, ORAL
     Route: 048
     Dates: start: 20040103
  19. NEXIUM [Concomitant]
  20. BUTALBITAL (BUTALBITAL) [Concomitant]
  21. TRIAMTERENE AND HYDROCHLOROTHIAZIDE (HYDROCHLOROTHIAZIDE, TRIAMTERENE) [Concomitant]

REACTIONS (31)
  - FEMUR FRACTURE [None]
  - PAIN IN EXTREMITY [None]
  - DEVICE FAILURE [None]
  - BACK PAIN [None]
  - FRACTURE NONUNION [None]
  - HAEMORRHAGIC ANAEMIA [None]
  - SCOLIOSIS [None]
  - EFFUSION [None]
  - DIABETES MELLITUS [None]
  - SCIATICA [None]
  - EXOSTOSIS [None]
  - DIVERTICULUM [None]
  - CAROTID ARTERY ANEURYSM [None]
  - CAROTID ARTERY DISEASE [None]
  - ANAEMIA POSTOPERATIVE [None]
  - LIMB DEFORMITY [None]
  - LIMB DISCOMFORT [None]
  - PLANTAR FASCIITIS [None]
  - CYST [None]
  - JOINT SWELLING [None]
  - PERONEAL NERVE PALSY [None]
  - CAROTID ARTERY STENOSIS [None]
  - PATHOLOGICAL FRACTURE [None]
  - FALL [None]
  - ABASIA [None]
  - BONE PAIN [None]
  - DRUG HYPERSENSITIVITY [None]
  - HAEMATOMA [None]
  - ARTHRALGIA [None]
  - OEDEMA PERIPHERAL [None]
  - MENISCUS LESION [None]
